FAERS Safety Report 8002930-0 (Version None)
Quarter: 2011Q4

REPORT INFORMATION
  Report Type: 
  Country: None (occurrence: None)
  Receive Date: 20111222
  Receipt Date: 20110329
  Transmission Date: 20120403
  Serious: No
  Sender: FDA-Public Use
  Company Number: US-GLAXOSMITHKLINE-A0920450A

PATIENT
  Age: 73 Year
  Sex: Male

DRUGS (6)
  1. AMBIEN CR [Concomitant]
  2. AVODART [Suspect]
     Indication: BENIGN PROSTATIC HYPERPLASIA
     Dosage: .5MG PER DAY
     Route: 048
     Dates: start: 20070101
  3. FISH OIL [Concomitant]
  4. SIMVASTATIN [Concomitant]
  5. FLOMAX [Concomitant]
  6. CALCIUM [Concomitant]

REACTIONS (1)
  - ERECTILE DYSFUNCTION [None]
